FAERS Safety Report 21260732 (Version 1)
Quarter: 2022Q3

REPORT INFORMATION
  Report Type: Spontaneous
  Country: CA (occurrence: CA)
  Receive Date: 20220826
  Receipt Date: 20220826
  Transmission Date: 20221027
  Serious: Yes (Hospitalization, Other)
  Sender: FDA-Public Use
  Company Number: CA-BAYER-2022A118817

PATIENT
  Age: 32 Year
  Sex: Female
  Weight: 126 kg

DRUGS (2)
  1. XARELTO [Suspect]
     Active Substance: RIVAROXABAN
     Indication: Pulmonary embolism
     Dosage: 20 MG, QD
     Route: 048
  2. NORETHINDRONE [Concomitant]
     Active Substance: NORETHINDRONE

REACTIONS (3)
  - Anaemia [Recovered/Resolved]
  - Abnormal uterine bleeding [Recovered/Resolved]
  - Transfusion [Recovered/Resolved]
